FAERS Safety Report 14930444 (Version 1)
Quarter: 2018Q2

REPORT INFORMATION
  Report Type: Spontaneous
  Country: US (occurrence: US)
  Receive Date: 20180523
  Receipt Date: 20180523
  Transmission Date: 20180711
  Serious: Yes (Other)
  Sender: FDA-Public Use
  Company Number: US-INDIVIOR LIMITED-INDV-111031-2018

PATIENT
  Age: 42 Year
  Sex: Female

DRUGS (1)
  1. SUBOXONE [Suspect]
     Active Substance: BUPRENORPHINE HYDROCHLORIDE\NALOXONE HYDROCHLORIDE
     Indication: DRUG DEPENDENCE
     Dosage: UP TO 12 MG, PER DAY
     Route: 060
     Dates: start: 201706

REACTIONS (5)
  - Arthralgia [Unknown]
  - Pulmonary oedema [Recovered/Resolved]
  - Carpal tunnel syndrome [Unknown]
  - Oedema peripheral [Recovered/Resolved]
  - Joint swelling [Unknown]

NARRATIVE: CASE EVENT DATE: 201801
